FAERS Safety Report 4979180-5 (Version None)
Quarter: 2006Q2

REPORT INFORMATION
  Report Type: 
  Country: None (occurrence: None)
  Receive Date: 20060421
  Receipt Date: 20060404
  Transmission Date: 20061013
  Serious: Yes (Other)
  Sender: FDA-Public Use
  Company Number: US-GLAXOSMITHKLINE-A0600367A

PATIENT
  Age: 77 Year
  Sex: Female
  Weight: 74.5 kg

DRUGS (2)
  1. SALMETEROL + FLUTICASONE [Suspect]
     Indication: CHRONIC OBSTRUCTIVE PULMONARY DISEASE
     Dosage: 1PUFF TWICE PER DAY
     Route: 055
     Dates: start: 20060303
  2. CIPRO [Concomitant]

REACTIONS (5)
  - BLOOD PRESSURE DECREASED [None]
  - BLOOD PRESSURE INCREASED [None]
  - CHEST PAIN [None]
  - HYPERTENSION [None]
  - PAIN IN EXTREMITY [None]
